FAERS Safety Report 4412309-6 (Version None)
Quarter: 2004Q3

REPORT INFORMATION
  Report Type: 
  Country: None (occurrence: None)
  Receive Date: 20040730
  Receipt Date: 20040528
  Transmission Date: 20050211
  Serious: Yes (Disabling)
  Sender: FDA-Public Use
  Company Number: US-MERCK-0406USA00030

PATIENT
  Age: 63 Year
  Sex: Female
  Weight: 84 kg

DRUGS (7)
  1. PROPRANOLOL HYDROCHLORIDE [Concomitant]
     Route: 048
  2. DISALCID [Concomitant]
     Indication: RHEUMATOID ARTHRITIS
     Route: 048
     Dates: start: 20040421, end: 20040519
  3. FOSAMAX [Suspect]
     Indication: OSTEOPOROSIS
     Route: 048
     Dates: start: 20040504, end: 20040601
  4. ASPIRIN [Concomitant]
     Route: 065
  5. FUROSEMIDE [Concomitant]
     Route: 048
  6. SYNTHROID [Concomitant]
     Route: 048
  7. METHOTREXATE [Concomitant]
     Route: 065
     Dates: end: 20040101

REACTIONS (3)
  - AGEUSIA [None]
  - DYSGEUSIA [None]
  - WEIGHT DECREASED [None]
